FAERS Safety Report 5754360-X (Version None)
Quarter: 2008Q2

REPORT INFORMATION
  Report Type: 
  Country: None (occurrence: None)
  Receive Date: 20080530
  Receipt Date: 20080519
  Transmission Date: 20081010
  Serious: Yes (Disabling)
  Sender: FDA-Public Use
  Company Number: GB-BAUSCH-2008BL002218

PATIENT
  Age: 10 Year
  Sex: Female

DRUGS (2)
  1. PREDNISOLONE [Suspect]
     Indication: BONE MARROW TRANSPLANT
  2. CYCLOSPORINE [Suspect]
     Indication: BONE MARROW TRANSPLANT

REACTIONS (5)
  - DISEASE PROGRESSION [None]
  - EXTREMITY CONTRACTURE [None]
  - GRAFT VERSUS HOST DISEASE [None]
  - JOINT CONTRACTURE [None]
  - SCLERODERMA [None]
